FAERS Safety Report 22084351 (Version 3)
Quarter: 2023Q2

REPORT INFORMATION
  Report Type: Spontaneous
  Country: US (occurrence: US)
  Receive Date: 20230310
  Receipt Date: 20230626
  Transmission Date: 20230721
  Serious: Yes (Death, Other)
  Sender: FDA-Public Use
  Company Number: US-TEVA-2023-US-2864630

PATIENT
  Age: 82 Year
  Sex: Male
  Weight: 82.55 kg

DRUGS (22)
  1. LOSARTAN [Suspect]
     Active Substance: LOSARTAN
     Indication: Hypertension
     Dosage: 100 MG TABLET
     Route: 048
     Dates: start: 20130207, end: 20140423
  2. LOSARTAN [Suspect]
     Active Substance: LOSARTAN
     Dosage: 100 MG TABLET
     Route: 048
     Dates: start: 20140415, end: 20170320
  3. LOSARTAN [Suspect]
     Active Substance: LOSARTAN
     Dosage: 100 MG TABLET
     Route: 048
     Dates: start: 20170718, end: 20180312
  4. LOSARTAN [Suspect]
     Active Substance: LOSARTAN
     Dosage: 100 MG TABLET
     Route: 048
     Dates: start: 20180306, end: 20180604
  5. LOSARTAN [Suspect]
     Active Substance: LOSARTAN
     Indication: Hypertension
     Dosage: 100 MG TABLET
     Route: 048
     Dates: start: 20170329, end: 20170627
  6. LOSARTAN [Suspect]
     Active Substance: LOSARTAN
     Dosage: 100 MG TABLET
     Route: 048
     Dates: start: 20181231, end: 20190331
  7. LOSARTAN [Suspect]
     Active Substance: LOSARTAN
     Dosage: 100 MG TABLET
     Route: 048
     Dates: start: 20190701, end: 20190731
  8. LOSARTAN [Suspect]
     Active Substance: LOSARTAN
     Indication: Hypertension
     Dosage: 50 MG TABLET
     Route: 048
     Dates: start: 20180907, end: 20190213
  9. LOSARTAN POTASSIUM [Suspect]
     Active Substance: LOSARTAN POTASSIUM
     Indication: Hypertension
     Dosage: 100 MG TABLET
     Route: 048
     Dates: start: 20190729, end: 20200229
  10. LOSARTAN POTASSIUM [Suspect]
     Active Substance: LOSARTAN POTASSIUM
     Dosage: 50 MG TABLET
     Route: 048
     Dates: start: 20200313, end: 20200412
  11. LOSARTAN POTASSIUM [Suspect]
     Active Substance: LOSARTAN POTASSIUM
     Indication: Hypertension
     Dosage: 50 MG TABLET
     Route: 048
     Dates: start: 20200408, end: 20200508
  12. VALSARTAN [Suspect]
     Active Substance: VALSARTAN
     Indication: Hypertension
     Dosage: 24 MG/26 MG
     Route: 065
     Dates: start: 20190206, end: 20190308
  13. VALSARTAN [Suspect]
     Active Substance: VALSARTAN
     Dosage: 24 MG/26 MG
     Route: 065
     Dates: start: 20190321, end: 20190420
  14. VALSARTAN [Suspect]
     Active Substance: VALSARTAN
     Dosage: 24 MG/26 MG
     Route: 065
     Dates: start: 20190417, end: 20190517
  15. VALSARTAN [Suspect]
     Active Substance: VALSARTAN
     Dosage: 24 MG/26 MG
     Route: 065
     Dates: start: 20190426, end: 20190526
  16. VALSARTAN [Suspect]
     Active Substance: VALSARTAN
     Dosage: 49 MG/ 51 MG
     Route: 065
     Dates: start: 20190612, end: 20190712
  17. TAMSULOSIN [Concomitant]
     Active Substance: TAMSULOSIN
     Indication: Prostatic disorder
     Dosage: 4 MG DAILY
     Route: 065
     Dates: start: 20130102
  18. TAMSULOSIN [Concomitant]
     Active Substance: TAMSULOSIN
     Indication: Micturition disorder
  19. TRAMADOL [Concomitant]
     Active Substance: TRAMADOL
     Indication: Pain management
     Dosage: 50 MG DAILY
     Route: 065
     Dates: start: 20130108
  20. AMLODIPINE [Concomitant]
     Active Substance: AMLODIPINE BESYLATE
     Indication: Hypertension
     Dosage: 10 MG DAILY
     Route: 065
     Dates: start: 20130207, end: 20180719
  21. FORMOTEROL FUMARATE [Concomitant]
     Active Substance: FORMOTEROL FUMARATE
     Indication: Dyspnoea
     Route: 065
     Dates: start: 20130108, end: 20160413
  22. FORMOTEROL FUMARATE [Concomitant]
     Active Substance: FORMOTEROL FUMARATE
     Indication: Wheezing

REACTIONS (5)
  - Epiglottic cancer [Fatal]
  - Metastasis [Fatal]
  - Chronic obstructive pulmonary disease [Fatal]
  - Cardiac failure congestive [Fatal]
  - Metastases to lung [Unknown]
